FAERS Safety Report 9678685 (Version 1)
Quarter: 2013Q4

REPORT INFORMATION
  Report Type: Report from Study
  Country: CA (occurrence: CA)
  Receive Date: 20131108
  Receipt Date: 20131108
  Transmission Date: 20140711
  Serious: Yes (Hospitalization, Other)
  Sender: FDA-Public Use
  Company Number: CA-MYLANLABS-2013S1024248

PATIENT
  Age: 42 Year
  Sex: Male

DRUGS (5)
  1. GEN-CLOZAPINE TABLETS [Suspect]
     Route: 048
     Dates: start: 20131010, end: 20131025
  2. QUETIAPINE [Concomitant]
     Route: 048
  3. ARIPIPRAZOLE [Concomitant]
     Route: 048
  4. CLOMIPRAMINE [Concomitant]
     Route: 048
  5. LORAZEPAM [Concomitant]
     Route: 060

REACTIONS (8)
  - Myocarditis [Not Recovered/Not Resolved]
  - Pericarditis [Not Recovered/Not Resolved]
  - Hyperhidrosis [Not Recovered/Not Resolved]
  - Headache [Not Recovered/Not Resolved]
  - Anxiety [Not Recovered/Not Resolved]
  - Pyrexia [Recovered/Resolved]
  - Chills [Not Recovered/Not Resolved]
  - Granuloma [Not Recovered/Not Resolved]
